FAERS Safety Report 6168304-2 (Version None)
Quarter: 2009Q2

REPORT INFORMATION
  Report Type: 
  Country: None (occurrence: None)
  Receive Date: 20090427
  Receipt Date: 20090427
  Transmission Date: 20091009
  Serious: Yes (Other)
  Sender: FDA-Public Use
  Company Number: US-PFIZER INC-2009158644

PATIENT
  Sex: Male
  Weight: 88.435 kg

DRUGS (3)
  1. CHANTIX [Suspect]
     Indication: SMOKING CESSATION THERAPY
     Dosage: UNK
     Dates: start: 20080101, end: 20081201
  2. SYNTHROID [Concomitant]
     Dosage: UNK
  3. VERAMYST [Concomitant]
     Route: 045

REACTIONS (7)
  - AGITATION [None]
  - FEELING ABNORMAL [None]
  - HEART RATE INCREASED [None]
  - HYPERTENSION [None]
  - HYPOTHYROIDISM [None]
  - IMPATIENCE [None]
  - TOBACCO USER [None]
